FAERS Safety Report 7525206-4 (Version None)
Quarter: 2011Q2

REPORT INFORMATION
  Report Type: 
  Country: None (occurrence: None)
  Receive Date: 20110526
  Receipt Date: 20110520
  Transmission Date: 20111010
  Serious: Yes (Hospitalization)
  Sender: FDA-Public Use
  Company Number: 925927

PATIENT
  Age: 64 Year
  Sex: Male

DRUGS (10)
  1. TACROLIMUS [Concomitant]
  2. (ESMOLOL) [Concomitant]
  3. PREDNISONE [Concomitant]
  4. AMIODARONE HCL [Suspect]
     Indication: CARDIAC FIBRILLATION
     Dosage: 1 MG/MIN
     Route: 041
  5. (VALGANCOCLOVIR) [Concomitant]
  6. AMIODARONE HCL [Suspect]
     Indication: CARDIAC FIBRILLATION
     Dosage: 50 MG, INTRAVENOUS BOLUS
     Route: 040
  7. TRIMETHOPRIM + SULFAMETHOXAZOLE [Concomitant]
  8. METOPROLOL TARTRATE [Concomitant]
  9. MYCOPHENOLATE MEFETIL [Concomitant]
  10. MYCAMINE [Concomitant]

REACTIONS (2)
  - CHOLESTASIS [None]
  - HEPATOTOXICITY [None]
